APPROVED DRUG PRODUCT: GLYCOPYRROLATE
Active Ingredient: GLYCOPYRROLATE
Strength: 1MG
Dosage Form/Route: TABLET;ORAL
Application: A203657 | Product #001 | TE Code: AA
Applicant: ALEMBIC PHARMACEUTICALS LTD
Approved: Nov 30, 2018 | RLD: No | RS: No | Type: RX